FAERS Safety Report 7319923-9 (Version None)
Quarter: 2011Q1

REPORT INFORMATION
  Report Type: 
  Country: None (occurrence: None)
  Receive Date: 20110228
  Receipt Date: 20110103
  Transmission Date: 20110831
  Serious: No
  Sender: FDA-Public Use
  Company Number: A0898604A

PATIENT
  Age: 30 Year
  Sex: Female

DRUGS (2)
  1. LAMICTAL [Suspect]
     Dosage: 25MG SINGLE DOSE
     Route: 048
     Dates: start: 20101202, end: 20101202
  2. ORTHO TRI-CYCLEN [Concomitant]

REACTIONS (3)
  - RASH PRURITIC [None]
  - RASH [None]
  - RASH MACULAR [None]
